FAERS Safety Report 23570911 (Version 1)
Quarter: 2024Q1

REPORT INFORMATION
  Report Type: Spontaneous
  Country: US (occurrence: US)
  Receive Date: 20240227
  Receipt Date: 20240227
  Transmission Date: 20240410
  Serious: No
  Sender: FDA-Public Use
  Company Number: US-VIIV HEALTHCARE LIMITED-US2024021325

PATIENT
  Age: 67 Year
  Sex: Male

DRUGS (3)
  1. RILPIVIRINE [Suspect]
     Active Substance: RILPIVIRINE
     Indication: HIV infection
     Dosage: UNK UNK, MO 600 AND 900MG/3ML
     Route: 030
     Dates: start: 20221219
  2. CABOTEGRAVIR [Suspect]
     Active Substance: CABOTEGRAVIR
     Indication: HIV infection
     Dosage: UNK UNK, MO 600 AND 900MG/3ML
     Route: 030
     Dates: start: 20221219
  3. TESTOSTERONE [Suspect]
     Active Substance: TESTOSTERONE
     Indication: Hypogonadism
     Dosage: UNK

REACTIONS (8)
  - Nasopharyngitis [Unknown]
  - Stress [Unknown]
  - Malaise [Unknown]
  - Dehydration [Unknown]
  - Palpitations [Unknown]
  - Cough variant asthma [Unknown]
  - Hypogonadism [Unknown]
  - Polycythaemia [Unknown]
